FAERS Safety Report 9971016 (Version 1)
Quarter: 2014Q1

REPORT INFORMATION
  Report Type: Report from Study
  Country: US (occurrence: US)
  Receive Date: 20140306
  Receipt Date: 20140306
  Transmission Date: 20141002
  Serious: No
  Sender: FDA-Public Use
  Company Number: US-ABBVIE-13P-163-1150463-00

PATIENT
  Age: 46 Year
  Sex: Male

DRUGS (4)
  1. HUMIRA [Suspect]
     Indication: ANKYLOSING SPONDYLITIS
     Dates: start: 2012
  2. OINTMENT [Concomitant]
     Indication: ECZEMA
     Route: 061
  3. ALLEGRA [Concomitant]
     Dosage: 180MG DAILY DURING SUMMER
  4. NASONEX [Concomitant]
     Dosage: SPARAY
     Route: 045

REACTIONS (1)
  - Cellulitis [Not Recovered/Not Resolved]
